FAERS Safety Report 4617385-3 (Version None)
Quarter: 2005Q1

REPORT INFORMATION
  Report Type: 
  Country: None (occurrence: None)
  Receive Date: 20050323
  Receipt Date: 20050316
  Transmission Date: 20050727
  Serious: Yes (Hospitalization)
  Sender: FDA-Public Use
  Company Number: US-ABBOTT-05P-163-0294362-00

PATIENT
  Sex: Female
  Weight: 83.082 kg

DRUGS (8)
  1. HUMIRA [Suspect]
     Indication: RHEUMATOID ARTHRITIS
     Route: 058
     Dates: start: 20040401, end: 20041102
  2. HUMIRA [Suspect]
     Route: 058
     Dates: start: 20041201, end: 20050201
  3. HUMIRA [Suspect]
     Route: 058
     Dates: start: 20030901, end: 20040401
  4. METHOTREXATE SODIUM [Concomitant]
     Indication: RHEUMATOID ARTHRITIS
     Route: 048
     Dates: start: 20030101
  5. PREDNISONE [Concomitant]
     Indication: RHEUMATOID ARTHRITIS
     Route: 048
  6. SPIRONOLACTONE [Concomitant]
     Indication: BLOOD PRESSURE
     Route: 048
  7. FOLIC ACID [Concomitant]
     Indication: RHEUMATOID ARTHRITIS
     Route: 048
     Dates: start: 20030101
  8. CARVEDILOL [Concomitant]
     Indication: CARDIAC DISORDER
     Route: 048
     Dates: start: 20020101

REACTIONS (9)
  - CHOLECYSTITIS INFECTIVE [None]
  - CHOLELITHIASIS [None]
  - CONDITION AGGRAVATED [None]
  - COUGH [None]
  - DRUG INEFFECTIVE [None]
  - INFLUENZA [None]
  - NASOPHARYNGITIS [None]
  - PHARYNGOLARYNGEAL PAIN [None]
  - TOE DEFORMITY [None]
